FAERS Safety Report 6748528-3 (Version None)
Quarter: 2010Q2

REPORT INFORMATION
  Report Type: 
  Country: None (occurrence: None)
  Receive Date: 20100601
  Receipt Date: 20100524
  Transmission Date: 20101027
  Serious: Yes (Death, Other)
  Sender: FDA-Public Use
  Company Number: US-CELGENEUS-163-21880-10040488

PATIENT
  Sex: Male

DRUGS (2)
  1. REVLIMID [Suspect]
     Indication: MYELODYSPLASTIC SYNDROME
     Route: 048
     Dates: start: 20100209
  2. REVLIMID [Suspect]
     Route: 048
     Dates: start: 20100112, end: 20100201

REACTIONS (4)
  - DEATH [None]
  - LOSS OF CONSCIOUSNESS [None]
  - RASH [None]
  - RED BLOOD CELL COUNT DECREASED [None]
